FAERS Safety Report 8685086 (Version 2)
Quarter: 2012Q4

REPORT INFORMATION
  Report Type: 
  Country: US (occurrence: US)
  Receive Date: 20120726
  Receipt Date: 20120925
  Transmission Date: 20130627
  Serious: No
  Sender: FDA-Public Use
  Company Number: US-ASTRAZENECA-2012SE44343

PATIENT
  Age: 46 Year
  Sex: Male

DRUGS (1)
  1. SEROQUEL [Suspect]
     Route: 048

REACTIONS (6)
  - Anxiety [Unknown]
  - Bipolar I disorder [Unknown]
  - Paranoia [Unknown]
  - Stress [Unknown]
  - Insomnia [Unknown]
  - Drug dose omission [Unknown]
